FAERS Safety Report 6817609-8 (Version None)
Quarter: 2010Q3

REPORT INFORMATION
  Report Type: 
  Country: None (occurrence: None)
  Receive Date: 20100706
  Receipt Date: 20090123
  Transmission Date: 20110219
  Serious: Yes (Hospitalization, Other)
  Sender: FDA-Public Use
  Company Number: US-PFIZER INC-2008014948

PATIENT
  Sex: Female

DRUGS (7)
  1. BEXTRA [Suspect]
     Indication: PAIN
     Dosage: 10 MG, UNK
     Route: 048
     Dates: start: 20040819, end: 20040907
  2. BECLOMETHASONE DIPROPIONATE/CLOTRIMAZOLE [Concomitant]
  3. LASIX [Concomitant]
  4. NOVOLOG [Concomitant]
     Indication: DIABETES MELLITUS
  5. MAVIK [Concomitant]
  6. LIPITOR [Concomitant]
  7. NEURONTIN [Concomitant]

REACTIONS (1)
  - ACUTE MYOCARDIAL INFARCTION [None]
